FAERS Safety Report 4848649-6 (Version None)
Quarter: 2005Q4

REPORT INFORMATION
  Report Type: 
  Country: None (occurrence: None)
  Receive Date: 20051206
  Receipt Date: 20051123
  Transmission Date: 20060501
  Serious: Yes (Death, Other)
  Sender: FDA-Public Use
  Company Number: 2005160773

PATIENT
  Age: 87 Year
  Sex: Female

DRUGS (12)
  1. PREDNISONE [Suspect]
     Indication: RHEUMATOID ARTHRITIS
     Dosage: 5 MG (5MG,1 IN 1 D), ORAL
     Route: 048
     Dates: start: 19970901, end: 20050820
  2. TIOTROPIUM BROMIDE (TIOTROPIUM BROMIDE) [Suspect]
     Indication: BRONCHITIS CHRONIC
     Dosage: 18 MCG (18 MCG, 1 IN 1 D), INHALATION
     Route: 055
     Dates: start: 20050819, end: 20050819
  3. RISPERDAL [Suspect]
     Indication: CHARLES BONNET SYNDROME
     Dosage: 0.5 MG (0.5 MG, 1 IN 1 D), ORAL
     Route: 048
     Dates: start: 20050215, end: 20050820
  4. TULOBUTEROL (TULOBUTEROL) [Suspect]
     Indication: BRONCHITIS
     Dosage: 2 MG (2 MG, 1 IN 1 DAY)
     Dates: start: 20050801
  5. TRANDOLAPRIL [Concomitant]
  6. SENNOSIDES (SENNOSIDE A+B) [Concomitant]
  7. MISOPROSTOL [Concomitant]
  8. LOXOPROFEN SODIUM (LOXOPROFEN SODIUM) [Concomitant]
  9. QUETIAPINE FUMARATE [Concomitant]
  10. BUCILLAMINE (BUCILLAMINE) [Concomitant]
  11. BROMHEXINE HYDROCHLORIDE (BROMHEXINE HYDROCHLORIDE) [Concomitant]
  12. ZOPICLONE (ZOPICLONE) [Concomitant]

REACTIONS (8)
  - BRONCHITIS CHRONIC [None]
  - CARDIOMEGALY [None]
  - CARDIOPULMONARY FAILURE [None]
  - CHARLES BONNET SYNDROME [None]
  - COUGH [None]
  - DISLOCATION OF VERTEBRA [None]
  - HALLUCINATION, VISUAL [None]
  - PRODUCTIVE COUGH [None]
